FAERS Safety Report 5198833-X (Version None)
Quarter: 2007Q1

REPORT INFORMATION
  Report Type: 
  Country: None (occurrence: None)
  Receive Date: 20070104
  Receipt Date: 20061227
  Transmission Date: 20070707
  Serious: Yes (Other)
  Sender: FDA-Public Use
  Company Number: RU-GLAXOSMITHKLINE-B0452717A

PATIENT
  Age: 72 Year
  Sex: Female

DRUGS (2)
  1. PAXIL [Suspect]
     Indication: DEPRESSION
     Dosage: 20MG PER DAY
     Route: 065
     Dates: start: 20060401, end: 20061201
  2. AKATINOL MEMANTINE [Concomitant]
     Indication: COGNITIVE DISORDER
     Dosage: 10MG PER DAY
     Dates: start: 20060901, end: 20061201

REACTIONS (2)
  - BALANCE DISORDER [None]
  - URINARY INCONTINENCE [None]
